FAERS Safety Report 6574687-1 (Version None)
Quarter: 2010Q1

REPORT INFORMATION
  Report Type: 
  Country: None (occurrence: None)
  Receive Date: 20100209
  Receipt Date: 20100204
  Transmission Date: 20100710
  Serious: Yes (Death, Hospitalization)
  Sender: FDA-Public Use
  Company Number: PHHY2010AT05885

PATIENT
  Sex: Male

DRUGS (1)
  1. RASILEZ [Suspect]

REACTIONS (5)
  - CHOLELITHIASIS [None]
  - DEHYDRATION [None]
  - DIARRHOEA [None]
  - RENAL FAILURE [None]
  - SURGERY [None]
